FAERS Safety Report 5860796-9 (Version None)
Quarter: 2008Q3

REPORT INFORMATION
  Report Type: 
  Country: None (occurrence: None)
  Receive Date: 20080827
  Receipt Date: 20080122
  Transmission Date: 20090109
  Serious: No
  Sender: FDA-Public Use
  Company Number: US-ABBOTT-07P-163-0426075-00

PATIENT
  Age: 51 Year
  Sex: Male

DRUGS (4)
  1. COATED PDS [Suspect]
     Indication: DRUG USE FOR UNKNOWN INDICATION
     Dosage: COATED
     Route: 048
     Dates: start: 20070913, end: 20071001
  2. COATED PDS [Suspect]
     Dosage: WHITE
     Route: 048
     Dates: start: 20070129, end: 20070812
  3. COATED PDS [Suspect]
     Dosage: WHITE
     Route: 048
     Dates: start: 20070813, end: 20070912
  4. COATED PDS [Suspect]
     Dosage: WHITE
     Route: 048
     Dates: start: 20071001

REACTIONS (1)
  - PRURITUS [None]
